FAERS Safety Report 9982514 (Version 1)
Quarter: 2014Q1

REPORT INFORMATION
  Report Type: Report from Study
  Country: US (occurrence: US)
  Receive Date: 20140307
  Receipt Date: 20140307
  Transmission Date: 20141002
  Serious: Yes (Hospitalization)
  Sender: FDA-Public Use
  Company Number: US-ABBVIE-13P-163-1180779-00

PATIENT
  Age: 58 Year
  Sex: Female
  Weight: 97.61 kg

DRUGS (12)
  1. HUMIRA [Suspect]
     Indication: RHEUMATOID ARTHRITIS
     Dates: start: 2007, end: 2011
  2. HUMIRA [Suspect]
     Dates: start: 2011, end: 201309
  3. PRILOSEC [Concomitant]
     Indication: GASTROOESOPHAGEAL REFLUX DISEASE
  4. NABUMETONE [Concomitant]
     Indication: RHEUMATOID ARTHRITIS
  5. CYMBALTA [Concomitant]
     Indication: DEPRESSION
  6. ARAVA [Concomitant]
     Indication: RHEUMATOID ARTHRITIS
  7. FOLIC ACID [Concomitant]
     Indication: VITAMIN SUPPLEMENTATION
  8. PREDNISONE [Concomitant]
     Indication: RHEUMATOID ARTHRITIS
  9. ESTROGEN [Concomitant]
     Indication: HORMONE REPLACEMENT THERAPY
  10. SPIRINOLACTONE [Concomitant]
     Indication: HYPERTENSION
  11. LISINOPRIL HCTZ [Concomitant]
     Indication: HYPERTENSION
  12. DETROL [Concomitant]
     Indication: URINARY INCONTINENCE

REACTIONS (2)
  - Respiratory tract infection [Recovered/Resolved]
  - Renal impairment [Recovered/Resolved]
